FAERS Safety Report 19361454 (Version 1)
Quarter: 2021Q2

REPORT INFORMATION
  Report Type: Spontaneous
  Country: IN (occurrence: IN)
  Receive Date: 20210603
  Receipt Date: 20210603
  Transmission Date: 20210717
  Serious: Yes (Other)
  Sender: FDA-Public Use
  Company Number: IN-ROCHE-2840272

PATIENT
  Age: 52 Year
  Sex: Female

DRUGS (2)
  1. HERCLON [Suspect]
     Active Substance: TRASTUZUMAB
     Indication: BREAST CANCER METASTATIC
  2. HERCLON [Suspect]
     Active Substance: TRASTUZUMAB
     Indication: BREAST CANCER
     Route: 041
     Dates: start: 20180504, end: 20190121

REACTIONS (1)
  - Recurrent cancer [Unknown]
